FAERS Safety Report 5853384-1 (Version None)
Quarter: 2008Q3

REPORT INFORMATION
  Report Type: 
  Country: None (occurrence: None)
  Receive Date: 20080820
  Receipt Date: 20060616
  Transmission Date: 20090109
  Serious: Yes (Death, Hospitalization)
  Sender: FDA-Public Use
  Company Number: US023923

PATIENT
  Age: 72 Year
  Sex: Male
  Weight: 63 kg

DRUGS (3)
  1. TRISENOX [Suspect]
     Indication: MYELODYSPLASTIC SYNDROME
     Dosage: 3 MG/KG QD INTRAVENOUS DRIP
     Route: 041
     Dates: start: 20060530, end: 20060603
  2. ASCORBIC ACID [Concomitant]
  3. OMEPRAZOLE [Concomitant]

REACTIONS (3)
  - HAEMODYNAMIC INSTABILITY [None]
  - HYPERTHERMIA [None]
  - INTERSTITIAL LUNG DISEASE [None]
